FAERS Safety Report 8760676 (Version 1)
Quarter: 2012Q4

REPORT INFORMATION
  Report Type: Report from Study
  Country: US (occurrence: US)
  Receive Date: 20120830
  Receipt Date: 20120830
  Transmission Date: 20130627
  Serious: Yes (Hospitalization, Other)
  Sender: FDA-Public Use
  Company Number: US-CELGENEUS-163-21880-09041044

PATIENT
  Age: 78 Year
  Sex: Female
  Weight: 65.9 kg

DRUGS (5)
  1. REVLIMID [Suspect]
     Indication: MULTIPLE MYELOMA
     Dosage: 10 Milligram
     Route: 048
     Dates: start: 20090325, end: 20090409
  2. MELPHALAN [Suspect]
     Indication: MULTIPLE MYELOMA
     Dosage: 5 milligram/sq. meter
     Route: 048
     Dates: start: 20090325, end: 20090328
  3. PREDNISONE [Suspect]
     Indication: MULTIPLE MYELOMA
     Dosage: 100 Milligram
     Route: 048
     Dates: start: 20090325, end: 20090328
  4. ASPIRIN [Concomitant]
     Indication: DRUG USE FOR UNKNOWN INDICATION
     Dosage: 325 Milligram
     Route: 048
     Dates: start: 20090325
  5. ASPIRIN [Concomitant]
     Indication: CHEST PAIN
     Route: 065
     Dates: start: 20090404

REACTIONS (2)
  - Oesophagitis [Recovered/Resolved]
  - Haemoglobin decreased [Recovered/Resolved]
